FAERS Safety Report 12742105 (Version 1)
Quarter: 2016Q3

REPORT INFORMATION
  Report Type: Spontaneous
  Country: US (occurrence: US)
  Receive Date: 20160914
  Receipt Date: 20160914
  Transmission Date: 20161109
  Serious: Yes (Other)
  Sender: FDA-Public Use
  Company Number: US-BRISTOL-MYERS SQUIBB COMPANY-BMS-2016-074074

PATIENT
  Age: 70 Year
  Sex: Female

DRUGS (6)
  1. WARFARIN SODIUM. [Suspect]
     Active Substance: WARFARIN SODIUM
     Dosage: 56 MG, QWK
     Route: 065
  2. WARFARIN SODIUM. [Suspect]
     Active Substance: WARFARIN SODIUM
     Dosage: 40 MG, QWK
     Route: 065
     Dates: start: 20141007
  3. WARFARIN SODIUM. [Suspect]
     Active Substance: WARFARIN SODIUM
     Dosage: 38 MG, QWK
     Route: 065
  4. WARFARIN SODIUM. [Suspect]
     Active Substance: WARFARIN SODIUM
     Dosage: 24 MG, QWK
     Route: 065
  5. WARFARIN SODIUM. [Suspect]
     Active Substance: WARFARIN SODIUM
     Dosage: 32 MG, QWK
     Route: 065
     Dates: start: 20140811
  6. WARFARIN SODIUM. [Suspect]
     Active Substance: WARFARIN SODIUM
     Indication: ATRIAL FIBRILLATION
     Dosage: 2 MG, QD
     Route: 065
     Dates: start: 20110411

REACTIONS (5)
  - International normalised ratio increased [Unknown]
  - Coagulation factor VII level decreased [Unknown]
  - Vaginal haemorrhage [Unknown]
  - Incorrect dosage administered [Unknown]
  - Contraindicated product administered [Unknown]
